FAERS Safety Report 13955836 (Version 1)
Quarter: 2017Q3

REPORT INFORMATION
  Report Type: Spontaneous
  Country: NL (occurrence: NL)
  Receive Date: 20170911
  Receipt Date: 20170911
  Transmission Date: 20171128
  Serious: Yes (Death)
  Sender: FDA-Public Use
  Company Number: NL-CELGENEUS-NLD-20170809350

PATIENT
  Age: 75 Year
  Sex: Female

DRUGS (11)
  1. ACETAMINOPHEN [Concomitant]
     Indication: PREMEDICATION
     Route: 065
  2. CYCLOPHOSPHAMIDE [Concomitant]
     Indication: ACUTE MYELOID LEUKAEMIA
     Dosage: 900 MILLIGRAM/SQ. METER
     Route: 065
  3. AZACITIDINE. [Suspect]
     Active Substance: AZACITIDINE
     Route: 058
  4. FLUDARABINE [Concomitant]
     Indication: ACUTE MYELOID LEUKAEMIA
     Dosage: 30 MILLIGRAM/SQ. METER
     Route: 065
  5. COTRIMOXAZOL [Concomitant]
     Active Substance: SULFAMETHOXAZOLE\TRIMETHOPRIM
     Indication: PRODUCT USED FOR UNKNOWN INDICATION
     Dosage: 480 MILLIGRAM
     Route: 065
  6. PEGFILGRASTIM [Concomitant]
     Active Substance: PEGFILGRASTIM
     Indication: NEUTROPENIA
     Route: 065
  7. VALACICLOVIR [Concomitant]
     Active Substance: VALACYCLOVIR HYDROCHLORIDE
     Indication: PRODUCT USED FOR UNKNOWN INDICATION
     Dosage: 1000 MILLIGRAM
     Route: 065
  8. AZACITIDINE. [Suspect]
     Active Substance: AZACITIDINE
     Indication: ACUTE MYELOID LEUKAEMIA
     Route: 058
  9. CLEMASTINE [Concomitant]
     Active Substance: CLEMASTINE
     Indication: PREMEDICATION
     Route: 065
  10. CIPROFLOXACIN [Concomitant]
     Indication: PRODUCT USED FOR UNKNOWN INDICATION
     Dosage: 1000 MILLIGRAM
     Route: 065
  11. FLUCONAZOL [Concomitant]
     Active Substance: FLUCONAZOLE
     Indication: PRODUCT USED FOR UNKNOWN INDICATION
     Dosage: 400 MILLIGRAM
     Route: 065

REACTIONS (2)
  - Infection [Unknown]
  - Death [Fatal]
